FAERS Safety Report 15900824 (Version 1)
Quarter: 2019Q1

REPORT INFORMATION
  Report Type: Spontaneous
  Country: FR (occurrence: FR)
  Receive Date: 20190201
  Receipt Date: 20190201
  Transmission Date: 20190417
  Serious: Yes (Hospitalization)
  Sender: FDA-Public Use
  Company Number: FR-ACCORD-104885

PATIENT
  Age: 73 Year
  Sex: Male

DRUGS (15)
  1. APIDRA [Concomitant]
     Active Substance: INSULIN GLULISINE
  2. ABASAGLAR [Concomitant]
     Active Substance: INSULIN GLARGINE
  3. PERMIXON [Concomitant]
     Active Substance: HERBALS\SAW PALMETTO
  4. ACTISKENAN [Concomitant]
     Active Substance: MORPHINE SULFATE
  5. ZOPICLONE [Concomitant]
     Active Substance: ZOPICLONE
  6. ALFUZOSIN [Concomitant]
     Active Substance: ALFUZOSIN
  7. ALLOPURINOL. [Concomitant]
     Active Substance: ALLOPURINOL
  8. FUROSEMIDE. [Concomitant]
     Active Substance: FUROSEMIDE
  9. SKENAN [Concomitant]
     Active Substance: MORPHINE SULFATE
  10. LERCANIDIPINE [Concomitant]
     Active Substance: LERCANIDIPINE
  11. CARBOPLATIN. [Suspect]
     Active Substance: CARBOPLATIN
     Indication: PROSTATE CANCER
     Route: 042
  12. FLUOROURACIL. [Suspect]
     Active Substance: FLUOROURACIL
     Indication: PROSTATE CANCER
     Route: 042
  13. TAXOTERE [Suspect]
     Active Substance: DOCETAXEL
     Indication: PROSTATE CANCER
     Route: 042
  14. DOLIPRANE [Concomitant]
     Active Substance: ACETAMINOPHEN
  15. PRAVASTATIN. [Concomitant]
     Active Substance: PRAVASTATIN

REACTIONS (4)
  - Off label use [Unknown]
  - Diarrhoea [Recovered/Resolved]
  - Acute kidney injury [Recovering/Resolving]
  - Dehydration [Recovered/Resolved]

NARRATIVE: CASE EVENT DATE: 20180527
